FAERS Safety Report 9448612 (Version 1)
Quarter: 2013Q3

REPORT INFORMATION
  Report Type: Spontaneous
  Country: US (occurrence: US)
  Receive Date: 20130808
  Receipt Date: 20130808
  Transmission Date: 20140515
  Serious: No
  Sender: FDA-Public Use
  Company Number: US-009507513-1308USA002252

PATIENT
  Sex: Female
  Weight: 48.73 kg

DRUGS (1)
  1. IMPLANON [Suspect]
     Dosage: 68 MG/ ONE ROD
     Dates: start: 201007, end: 20130731

REACTIONS (3)
  - Device breakage [Unknown]
  - Product quality issue [Recovered/Resolved]
  - No adverse event [Unknown]
